FAERS Safety Report 17660521 (Version 1)
Quarter: 2020Q2

REPORT INFORMATION
  Report Type: Spontaneous
  Country: US (occurrence: US)
  Receive Date: 20200410
  Receipt Date: 20200410
  Transmission Date: 20200713
  Serious: No
  Sender: FDA-Public Use
  Company Number: None

PATIENT
  Age: 80 Year
  Sex: Female
  Weight: 77.4 kg

DRUGS (13)
  1. SYNTHROID 100MCG, ORAL [Concomitant]
  2. CHLORTHALIDONE 25MG, ORAL [Concomitant]
  3. ATORVASTATIN 40MG, ORAL [Concomitant]
  4. TEMOZOLOMIDE. [Suspect]
     Active Substance: TEMOZOLOMIDE
     Indication: BRAIN NEOPLASM
     Route: 048
     Dates: start: 20200302, end: 20200410
  5. VITAMIN D 25 MCG, ORAL [Concomitant]
  6. RANEXA 500MG, ORAL [Concomitant]
  7. OMEPRAZOLE 40MG, ORAL [Concomitant]
  8. HYDRALAZINE 25MG, ORAL [Concomitant]
  9. ATENOLOL 25MG, ORAL [Concomitant]
  10. MONTELUKAST 10MG, ORAL [Concomitant]
  11. LEVETIRACETAM 500MG, ORAL [Concomitant]
  12. CARVEDILOL 3.125MG, ORAL [Concomitant]
  13. AMLODIPINE BESYLATE 10MG, ORAL [Concomitant]

REACTIONS (1)
  - Death [None]

NARRATIVE: CASE EVENT DATE: 20200410
